FAERS Safety Report 5048573-2 (Version None)
Quarter: 2006Q3

REPORT INFORMATION
  Report Type: 
  Country: None (occurrence: None)
  Receive Date: 20060705
  Receipt Date: 20060622
  Transmission Date: 20061208
  Serious: Yes (Death)
  Sender: FDA-Public Use
  Company Number: WAES 0605USA03680

PATIENT
  Age: 49 Year
  Sex: Female

DRUGS (3)
  1. CANCIDAS [Suspect]
     Indication: BRONCHOPULMONARY ASPERGILLOSIS
     Dosage: 70 MG/1X
     Route: 042
     Dates: start: 20051124, end: 20051124
  2. PRIMAXIN [Concomitant]
  3. LINEZOLID [Concomitant]

REACTIONS (1)
  - ENTEROCOCCAL SEPSIS [None]
